FAERS Safety Report 13207536 (Version 1)
Quarter: 2017Q1

REPORT INFORMATION
  Report Type: Spontaneous
  Country: US (occurrence: US)
  Receive Date: 20170209
  Receipt Date: 20170209
  Transmission Date: 20170428
  Serious: No
  Sender: FDA-Public Use
  Company Number: US-SA-2017SA005750

PATIENT
  Sex: Female

DRUGS (4)
  1. PRALUENT [Suspect]
     Active Substance: ALIROCUMAB
     Indication: TYPE IIA HYPERLIPIDAEMIA
     Route: 065
     Dates: start: 201603
  2. ALIROCUMAB PREFILLED PEN [Concomitant]
     Active Substance: ALIROCUMAB
     Dates: start: 201603
  3. EZETIMIBE. [Suspect]
     Active Substance: EZETIMIBE
     Route: 065
     Dates: end: 2016
  4. ROSUVASTATIN. [Suspect]
     Active Substance: ROSUVASTATIN
     Dosage: STRENGTH 40 MG
     Route: 065

REACTIONS (3)
  - Blood cholesterol increased [Unknown]
  - Blood triglycerides increased [Unknown]
  - Low density lipoprotein increased [Unknown]

NARRATIVE: CASE EVENT DATE: 20170107
